FAERS Safety Report 21041986 (Version 1)
Quarter: 2022Q3

REPORT INFORMATION
  Report Type: Spontaneous
  Country: JP (occurrence: JP)
  Receive Date: 20220705
  Receipt Date: 20220705
  Transmission Date: 20221027
  Serious: Yes (Other)
  Sender: FDA-Public Use
  Company Number: JP-ASTELLAS-2022JP009281

PATIENT
  Age: 62 Year
  Sex: Male

DRUGS (1)
  1. ZOLPIDEM TARTRATE [Suspect]
     Active Substance: ZOLPIDEM TARTRATE
     Indication: Product used for unknown indication
     Dosage: 10MG PRN
     Route: 048

REACTIONS (2)
  - Altered state of consciousness [Unknown]
  - Somnambulism [Unknown]

NARRATIVE: CASE EVENT DATE: 20220601
